FAERS Safety Report 13821369 (Version 1)
Quarter: 2017Q3

REPORT INFORMATION
  Report Type: Spontaneous
  Country: GB (occurrence: GB)
  Receive Date: 20170801
  Receipt Date: 20170801
  Transmission Date: 20171127
  Serious: Yes (Other)
  Sender: FDA-Public Use
  Company Number: GB-TEVA-790064ACC

PATIENT
  Age: 47 Year
  Sex: Female

DRUGS (1)
  1. IPRATROPIUM - ACTAVIS [Suspect]
     Active Substance: IPRATROPIUM BROMIDE
     Indication: DYSPNOEA
     Route: 055
     Dates: start: 20170430

REACTIONS (7)
  - Paraesthesia [Unknown]
  - Tongue dry [Unknown]
  - Swollen tongue [Unknown]
  - Lip swelling [Unknown]
  - Eye swelling [Unknown]
  - Feeling abnormal [Unknown]
  - Dyspnoea [Unknown]

NARRATIVE: CASE EVENT DATE: 20170430
